FAERS Safety Report 9617927 (Version 1)
Quarter: 2013Q4

REPORT INFORMATION
  Report Type: Spontaneous
  Country: US (occurrence: US)
  Receive Date: 20131011
  Receipt Date: 20131011
  Transmission Date: 20140711
  Serious: No
  Sender: FDA-Public Use
  Company Number: US-009507513-1310USA004261

PATIENT
  Age: 65 Year
  Sex: Female

DRUGS (1)
  1. BETAMETHASONE DIPROPIONATE [Suspect]
     Indication: ECZEMA
     Dosage: UNK
     Route: 061
     Dates: start: 200310

REACTIONS (2)
  - Adverse event [Unknown]
  - Drug ineffective [Unknown]
